FAERS Safety Report 18422156 (Version 6)
Quarter: 2022Q1

REPORT INFORMATION
  Report Type: Spontaneous
  Country: CA (occurrence: CA)
  Receive Date: 20201023
  Receipt Date: 20220224
  Transmission Date: 20220423
  Serious: Yes (Life-Threatening, Disabling, Other)
  Sender: FDA-Public Use
  Company Number: CA-CONCORDIA PHARMACEUTICALS INC.-CO-PL-CA-2016-444

PATIENT

DRUGS (255)
  1. HYDROXYCHLOROQUINE SULFATE [Interacting]
     Active Substance: HYDROXYCHLOROQUINE SULFATE
     Indication: Rheumatoid arthritis
     Dosage: 400 MG, QD
     Route: 048
     Dates: start: 2006
  2. HYDROXYCHLOROQUINE SULFATE [Interacting]
     Active Substance: HYDROXYCHLOROQUINE SULFATE
     Indication: Product used for unknown indication
     Dosage: 400 MG, QD
     Route: 065
  3. HYDROXYCHLOROQUINE SULFATE [Interacting]
     Active Substance: HYDROXYCHLOROQUINE SULFATE
     Dosage: UNK
     Route: 065
  4. HYDROXYCHLOROQUINE SULFATE [Interacting]
     Active Substance: HYDROXYCHLOROQUINE SULFATE
     Dosage: UNK
     Route: 065
  5. HYDROXYCHLOROQUINE SULFATE [Interacting]
     Active Substance: HYDROXYCHLOROQUINE SULFATE
     Dosage: UNK
     Route: 065
  6. HYDROXYCHLOROQUINE SULFATE [Interacting]
     Active Substance: HYDROXYCHLOROQUINE SULFATE
     Dosage: 400 MG
     Route: 065
  7. HYDROXYCHLOROQUINE SULFATE [Interacting]
     Active Substance: HYDROXYCHLOROQUINE SULFATE
     Dosage: 400 MG, QD (ONCE DAILY)
     Route: 065
  8. HYDROXYCHLOROQUINE SULFATE [Interacting]
     Active Substance: HYDROXYCHLOROQUINE SULFATE
     Dosage: UNK
     Route: 065
  9. HYDROXYCHLOROQUINE SULFATE [Interacting]
     Active Substance: HYDROXYCHLOROQUINE SULFATE
     Dosage: UNK
     Route: 065
  10. HYDROXYCHLOROQUINE SULFATE [Interacting]
     Active Substance: HYDROXYCHLOROQUINE SULFATE
     Dosage: UNK
     Route: 065
  11. HYDROXYCHLOROQUINE SULFATE [Interacting]
     Active Substance: HYDROXYCHLOROQUINE SULFATE
     Dosage: UNK
     Route: 065
  12. HYDROXYCHLOROQUINE [Interacting]
     Active Substance: HYDROXYCHLOROQUINE
     Indication: Rheumatoid arthritis
     Dosage: 4000 MG, QD, TABLET, APO HYDROXYQUINE
     Route: 058
     Dates: start: 2006
  13. HYDROXYCHLOROQUINE [Interacting]
     Active Substance: HYDROXYCHLOROQUINE
     Dosage: 400 MG, QD, TABLET, APO HYDROXYQUINE
     Route: 065
     Dates: start: 2006
  14. HYDROXYCHLOROQUINE [Interacting]
     Active Substance: HYDROXYCHLOROQUINE
     Dosage: UNK, TABLET, APO HYDROXYQUINE
     Route: 065
  15. HYDROXYCHLOROQUINE [Interacting]
     Active Substance: HYDROXYCHLOROQUINE
     Dosage: UNK
     Route: 048
  16. HYDROXYCHLOROQUINE [Interacting]
     Active Substance: HYDROXYCHLOROQUINE
     Dosage: UNK
     Route: 048
  17. HYDROXYCHLOROQUINE [Interacting]
     Active Substance: HYDROXYCHLOROQUINE
     Dosage: 400 MG, QD
     Route: 065
  18. HYDROXYCHLOROQUINE [Interacting]
     Active Substance: HYDROXYCHLOROQUINE
     Dosage: 400 MG, QD
     Route: 048
  19. HYDROXYCHLOROQUINE [Interacting]
     Active Substance: HYDROXYCHLOROQUINE
     Indication: Rheumatoid arthritis
     Dosage: UNK
     Route: 048
  20. HYDROXYCHLOROQUINE [Interacting]
     Active Substance: HYDROXYCHLOROQUINE
     Dosage: UNK
     Route: 048
  21. HYDROXYCHLOROQUINE [Interacting]
     Active Substance: HYDROXYCHLOROQUINE
     Dosage: UNK, UNK, UNK
     Route: 065
  22. HYDROXYCHLOROQUINE [Interacting]
     Active Substance: HYDROXYCHLOROQUINE
     Indication: Rheumatoid arthritis
     Dosage: UNK
     Route: 048
  23. HYDROXYCHLOROQUINE [Interacting]
     Active Substance: HYDROXYCHLOROQUINE
     Indication: Product used for unknown indication
     Dosage: UNK
     Route: 048
  24. HYDROXYCHLOROQUINE [Interacting]
     Active Substance: HYDROXYCHLOROQUINE
     Dosage: 400 MG, QD
  25. HYDROXYCHLOROQUINE [Interacting]
     Active Substance: HYDROXYCHLOROQUINE
     Dosage: UNK
  26. ARAVA [Interacting]
     Active Substance: LEFLUNOMIDE
     Indication: Rheumatoid arthritis
     Dosage: 20 MG
     Route: 048
     Dates: start: 201509
  27. ARAVA [Interacting]
     Active Substance: LEFLUNOMIDE
     Dosage: UNK
     Route: 065
  28. ARAVA [Interacting]
     Active Substance: LEFLUNOMIDE
     Dosage: UNK
     Route: 048
  29. ARAVA [Interacting]
     Active Substance: LEFLUNOMIDE
     Dosage: UNK
     Route: 065
  30. ARAVA [Interacting]
     Active Substance: LEFLUNOMIDE
     Dosage: UNK
     Route: 048
  31. ARAVA [Interacting]
     Active Substance: LEFLUNOMIDE
     Dosage: UNK
     Route: 065
  32. ARAVA [Interacting]
     Active Substance: LEFLUNOMIDE
     Dosage: UNK, UNK, UNK
     Route: 065
  33. LEFLUNOMIDE [Interacting]
     Active Substance: LEFLUNOMIDE
     Indication: Rheumatoid arthritis
     Dosage: UNK
     Route: 048
  34. LEFLUNOMIDE [Interacting]
     Active Substance: LEFLUNOMIDE
     Dosage: UNK
     Route: 065
  35. LEFLUNOMIDE [Interacting]
     Active Substance: LEFLUNOMIDE
     Dosage: UNK
     Route: 065
  36. LEFLUNOMIDE [Interacting]
     Active Substance: LEFLUNOMIDE
     Dosage: UNK
     Route: 065
  37. LEFLUNOMIDE [Interacting]
     Active Substance: LEFLUNOMIDE
     Dosage: UNK
     Route: 065
  38. METHOTREXATE [Interacting]
     Active Substance: METHOTREXATE
     Indication: Rheumatoid arthritis
     Dosage: 25 MG, WEEKLY
     Route: 048
     Dates: start: 2006, end: 2016
  39. METHOTREXATE [Interacting]
     Active Substance: METHOTREXATE
     Dosage: 20 MG, WEEKLY
     Route: 058
     Dates: start: 2006, end: 2016
  40. METHOTREXATE [Interacting]
     Active Substance: METHOTREXATE
     Dosage: UNK
     Route: 065
  41. METHOTREXATE [Interacting]
     Active Substance: METHOTREXATE
     Dosage: 2 G, QD
     Route: 048
  42. METHOTREXATE [Interacting]
     Active Substance: METHOTREXATE
     Dosage: 25 MG
     Route: 048
  43. METHOTREXATE [Interacting]
     Active Substance: METHOTREXATE
     Dosage: 25 MG
     Route: 058
  44. METHOTREXATE [Interacting]
     Active Substance: METHOTREXATE
     Dosage: UNK, UNK, UNK
     Route: 065
  45. METHOTREXATE [Interacting]
     Active Substance: METHOTREXATE
     Indication: Rheumatoid arthritis
     Dosage: 25 MG, UNK
     Route: 048
  46. METHOTREXATE [Interacting]
     Active Substance: METHOTREXATE
     Dosage: 20 MG, QD
     Route: 048
  47. METHOTREXATE [Interacting]
     Active Substance: METHOTREXATE
     Dosage: 1 DOSAGE FORM, QD
     Route: 048
  48. METHOTREXATE [Interacting]
     Active Substance: METHOTREXATE
     Dosage: 20 MG, QW
     Route: 065
  49. METHOTREXATE [Interacting]
     Active Substance: METHOTREXATE
     Dosage: 15 MG, QD
     Route: 048
  50. METHOTREXATE [Interacting]
     Active Substance: METHOTREXATE
     Dosage: 20 MG, QD
     Route: 048
  51. METHOTREXATE [Interacting]
     Active Substance: METHOTREXATE
     Dosage: 25 MG, QD
     Route: 048
  52. CETIRIZINE HYDROCHLORIDE [Interacting]
     Active Substance: CETIRIZINE HYDROCHLORIDE
     Indication: Rheumatoid arthritis
     Dosage: UNK
     Route: 065
  53. CETIRIZINE HYDROCHLORIDE [Interacting]
     Active Substance: CETIRIZINE HYDROCHLORIDE
     Indication: Off label use
     Dosage: 10 MG
     Route: 065
  54. CETIRIZINE HYDROCHLORIDE [Interacting]
     Active Substance: CETIRIZINE HYDROCHLORIDE
     Dosage: UNK
     Route: 065
  55. CETIRIZINE HYDROCHLORIDE [Interacting]
     Active Substance: CETIRIZINE HYDROCHLORIDE
     Indication: Rheumatoid arthritis
     Dosage: UNK
     Route: 065
  56. CETIRIZINE HYDROCHLORIDE [Interacting]
     Active Substance: CETIRIZINE HYDROCHLORIDE
     Dosage: 25 MG
     Route: 065
  57. PSEUDOEPHEDRINE HYDROCHLORIDE [Interacting]
     Active Substance: PSEUDOEPHEDRINE HYDROCHLORIDE
     Indication: Rheumatoid arthritis
     Dosage: 25 MG, UNK
     Route: 065
  58. PSEUDOEPHEDRINE HYDROCHLORIDE [Interacting]
     Active Substance: PSEUDOEPHEDRINE HYDROCHLORIDE
     Indication: Product used for unknown indication
     Dosage: UNK
     Route: 065
  59. PSEUDOEPHEDRINE HYDROCHLORIDE [Interacting]
     Active Substance: PSEUDOEPHEDRINE HYDROCHLORIDE
     Dosage: UNK
     Route: 065
  60. PSEUDOEPHEDRINE HYDROCHLORIDE [Interacting]
     Active Substance: PSEUDOEPHEDRINE HYDROCHLORIDE
     Dosage: UNK
     Route: 065
  61. DESOXIMETASONE [Interacting]
     Active Substance: DESOXIMETASONE
     Indication: Rheumatoid arthritis
     Dosage: UNK
     Route: 048
  62. DESOXIMETASONE [Interacting]
     Active Substance: DESOXIMETASONE
     Dosage: UNK
     Route: 048
  63. DESOXIMETASONE [Interacting]
     Active Substance: DESOXIMETASONE
     Dosage: UNK
     Route: 003
  64. DESOXIMETASONE [Interacting]
     Active Substance: DESOXIMETASONE
     Dosage: UNK
     Route: 058
  65. DESOXIMETASONE [Interacting]
     Active Substance: DESOXIMETASONE
     Dosage: UNK
     Route: 058
  66. FOSAMAX [Interacting]
     Active Substance: ALENDRONATE SODIUM
     Indication: Rheumatoid arthritis
     Dosage: UNK
     Route: 048
  67. FOSAMAX [Interacting]
     Active Substance: ALENDRONATE SODIUM
     Dosage: UNK
     Route: 048
  68. FOSAMAX [Interacting]
     Active Substance: ALENDRONATE SODIUM
     Dosage: UNK
     Route: 048
  69. FOSAMAX [Interacting]
     Active Substance: ALENDRONATE SODIUM
     Dosage: UNK
     Route: 065
  70. FOSAMAX [Interacting]
     Active Substance: ALENDRONATE SODIUM
     Dosage: UNK
     Route: 065
  71. ALENDRONATE SODIUM [Interacting]
     Active Substance: ALENDRONATE SODIUM
     Indication: Rheumatoid arthritis
     Dosage: UNK
     Route: 048
  72. ALENDRONATE SODIUM [Interacting]
     Active Substance: ALENDRONATE SODIUM
     Dosage: UNK
     Route: 048
  73. ALENDRONATE SODIUM [Interacting]
     Active Substance: ALENDRONATE SODIUM
     Dosage: UNK
     Route: 048
  74. DICLOFENAC SODIUM [Interacting]
     Active Substance: DICLOFENAC SODIUM
     Indication: Product used for unknown indication
     Dosage: UNK
     Route: 065
  75. DICLOFENAC SODIUM [Interacting]
     Active Substance: DICLOFENAC SODIUM
     Indication: Product used for unknown indication
     Dosage: UNK
     Route: 065
  76. DICLOFENAC SODIUM [Interacting]
     Active Substance: DICLOFENAC SODIUM
     Dosage: 50 MG
     Route: 065
  77. DICLOFENAC SODIUM [Interacting]
     Active Substance: DICLOFENAC SODIUM
     Dosage: UNK
     Route: 065
  78. DICLOFENAC SODIUM [Interacting]
     Active Substance: DICLOFENAC SODIUM
     Dosage: UNK
     Route: 065
  79. CORTISONE ACETATE [Interacting]
     Active Substance: CORTISONE ACETATE
     Indication: Rheumatoid arthritis
     Dosage: 25 MG, UNK
     Route: 048
  80. CORTISONE ACETATE [Interacting]
     Active Substance: CORTISONE ACETATE
     Dosage: 25 MG, UNK
     Route: 048
  81. CORTISONE ACETATE [Interacting]
     Active Substance: CORTISONE ACETATE
     Dosage: UNK
     Route: 048
  82. CORTISONE ACETATE [Interacting]
     Active Substance: CORTISONE ACETATE
     Dosage: UNK, UNK, UNK
     Route: 065
  83. PREDNISONE [Interacting]
     Active Substance: PREDNISONE
     Indication: Rheumatoid arthritis
     Dosage: UNK
     Route: 065
  84. PREDNISONE [Interacting]
     Active Substance: PREDNISONE
     Indication: Product used for unknown indication
     Dosage: UNK
     Route: 048
  85. PREDNISONE [Interacting]
     Active Substance: PREDNISONE
     Dosage: UNK
     Route: 065
  86. PREDNISONE [Interacting]
     Active Substance: PREDNISONE
     Dosage: UNK
     Route: 048
  87. PREDNISONE [Interacting]
     Active Substance: PREDNISONE
     Dosage: UNK
     Route: 048
  88. PREDNISONE [Interacting]
     Active Substance: PREDNISONE
     Dosage: UNK
     Route: 042
  89. PREDNISONE [Interacting]
     Active Substance: PREDNISONE
     Indication: Rheumatoid arthritis
     Dosage: 5 MG
     Route: 065
  90. SULFASALAZINE [Interacting]
     Active Substance: SULFASALAZINE
     Indication: Rheumatoid arthritis
     Dosage: 1 G, BID
     Route: 048
     Dates: start: 2006, end: 2007
  91. SULFASALAZINE [Interacting]
     Active Substance: SULFASALAZINE
     Dosage: 500 MG, BID
     Route: 065
  92. SULFASALAZINE [Interacting]
     Active Substance: SULFASALAZINE
     Dosage: 1 G, BID
     Route: 048
  93. SULFASALAZINE [Interacting]
     Active Substance: SULFASALAZINE
     Dosage: 1 G, BID
     Route: 048
  94. SULFASALAZINE [Interacting]
     Active Substance: SULFASALAZINE
     Dosage: 500 MG
     Route: 048
  95. SULFASALAZINE [Interacting]
     Active Substance: SULFASALAZINE
     Dosage: 1 G, QD
     Route: 065
  96. SULFASALAZINE [Interacting]
     Active Substance: SULFASALAZINE
     Dosage: 1000 MG, QD
     Route: 048
  97. ACETAMINOPHEN [Interacting]
     Active Substance: ACETAMINOPHEN
     Indication: Product used for unknown indication
     Dosage: UNK
     Route: 065
  98. SARILUMAB [Interacting]
     Active Substance: SARILUMAB
     Indication: Rheumatoid arthritis
     Dosage: UNK
     Route: 065
  99. SARILUMAB [Interacting]
     Active Substance: SARILUMAB
     Dosage: UNK
     Route: 065
  100. TOPICORT [Interacting]
     Active Substance: DESOXIMETASONE
     Indication: Rheumatoid arthritis
     Dosage: UNK
     Route: 058
  101. TOPICORT [Interacting]
     Active Substance: DESOXIMETASONE
     Dosage: UNK
     Route: 065
  102. TOPICORT [Interacting]
     Active Substance: DESOXIMETASONE
     Dosage: UNK
     Route: 048
  103. TOPICORT [Interacting]
     Active Substance: DESOXIMETASONE
     Dosage: UNK
     Route: 058
  104. TOPICORT [Interacting]
     Active Substance: DESOXIMETASONE
     Dosage: UNK
     Route: 058
  105. FOLIC ACID [Interacting]
     Active Substance: FOLIC ACID
     Indication: Rheumatoid arthritis
     Dosage: 1 MG
     Route: 065
  106. FOLIC ACID [Interacting]
     Active Substance: FOLIC ACID
     Dosage: 5 MG
     Route: 065
  107. FOLIC ACID [Interacting]
     Active Substance: FOLIC ACID
     Dosage: 25 MG
     Route: 048
  108. FOLIC ACID [Interacting]
     Active Substance: FOLIC ACID
     Dosage: 500 MG
     Route: 065
  109. FOLIC ACID [Interacting]
     Active Substance: FOLIC ACID
     Dosage: 3 MG
     Route: 065
  110. FOLIC ACID [Interacting]
     Active Substance: FOLIC ACID
     Dosage: 0.5 MG
     Route: 065
  111. FOLIC ACID [Interacting]
     Active Substance: FOLIC ACID
     Dosage: 1 MG
     Route: 065
  112. FOLIC ACID [Interacting]
     Active Substance: FOLIC ACID
     Dosage: UNK, UNK, UNK
     Route: 065
  113. ACTEMRA [Interacting]
     Active Substance: TOCILIZUMAB
     Indication: Rheumatoid arthritis
     Dosage: UNK
     Route: 042
  114. ACTEMRA [Interacting]
     Active Substance: TOCILIZUMAB
     Dosage: UNK, UNK, UNK
     Route: 065
  115. CIMZIA [Interacting]
     Active Substance: CERTOLIZUMAB PEGOL
     Indication: Rheumatoid arthritis
     Dosage: 400 MG
     Route: 058
  116. CIMZIA [Interacting]
     Active Substance: CERTOLIZUMAB PEGOL
     Indication: Psoriasis
     Dosage: UNK
     Route: 065
  117. ORENCIA [Interacting]
     Active Substance: ABATACEPT
     Indication: Rheumatoid arthritis
     Dosage: UNK
     Route: 042
     Dates: start: 201005, end: 201103
  118. ORENCIA [Interacting]
     Active Substance: ABATACEPT
     Dosage: UNK
     Route: 058
  119. ORENCIA [Interacting]
     Active Substance: ABATACEPT
     Dosage: UNK
     Route: 042
  120. ORENCIA [Interacting]
     Active Substance: ABATACEPT
     Dosage: UNK
     Route: 041
  121. ORENCIA [Interacting]
     Active Substance: ABATACEPT
     Dosage: UNK
     Route: 058
  122. ORENCIA [Interacting]
     Active Substance: ABATACEPT
     Dosage: UNK
     Route: 058
  123. ORENCIA [Interacting]
     Active Substance: ABATACEPT
     Dosage: UNK
     Route: 041
  124. REMICADE [Interacting]
     Active Substance: INFLIXIMAB
     Indication: Rheumatoid arthritis
     Dosage: UNK
     Route: 042
  125. REMICADE [Interacting]
     Active Substance: INFLIXIMAB
     Dosage: UNK
     Route: 042
  126. REMICADE [Interacting]
     Active Substance: INFLIXIMAB
     Dosage: UNK
     Route: 042
  127. PHTHALYLSULFATHIAZOLE [Interacting]
     Active Substance: PHTHALYLSULFATHIAZOLE
     Indication: Rheumatoid arthritis
     Dosage: UNK
     Route: 065
  128. PHTHALYLSULFATHIAZOLE [Interacting]
     Active Substance: PHTHALYLSULFATHIAZOLE
     Indication: Product used for unknown indication
     Dosage: UNK
     Route: 065
  129. PHTHALYLSULFATHIAZOLE [Interacting]
     Active Substance: PHTHALYLSULFATHIAZOLE
     Dosage: UNK
     Route: 065
  130. PHTHALYLSULFATHIAZOLE [Interacting]
     Active Substance: PHTHALYLSULFATHIAZOLE
     Dosage: UNK
     Route: 065
  131. SULFATHALIDINE [Interacting]
     Active Substance: PHTHALYLSULFATHIAZOLE
     Dosage: UNK
     Route: 065
  132. HUMIRA [Interacting]
     Active Substance: ADALIMUMAB
     Indication: Rheumatoid arthritis
     Dosage: 40 MG
     Route: 058
  133. HUMIRA [Interacting]
     Active Substance: ADALIMUMAB
     Dosage: 40 MG
     Route: 058
  134. HUMIRA [Interacting]
     Active Substance: ADALIMUMAB
     Dosage: UNK
     Route: 065
  135. HUMIRA [Interacting]
     Active Substance: ADALIMUMAB
     Dosage: 4 MG
     Route: 058
  136. HUMIRA [Interacting]
     Active Substance: ADALIMUMAB
     Dosage: 40 MG
     Route: 058
  137. RITUXAN [Suspect]
     Active Substance: RITUXIMAB
     Indication: Rheumatoid arthritis
     Dosage: UNK
     Route: 042
     Dates: start: 2009, end: 2010
  138. RITUXAN [Suspect]
     Active Substance: RITUXIMAB
     Dosage: UNK
     Route: 042
     Dates: start: 2009, end: 2010
  139. SIMPONI [Interacting]
     Active Substance: GOLIMUMAB
     Indication: Rheumatoid arthritis
     Dosage: UNK
     Route: 058
  140. SIMPONI [Interacting]
     Active Substance: GOLIMUMAB
     Dosage: UNK
     Route: 042
  141. SIMPONI [Interacting]
     Active Substance: GOLIMUMAB
     Dosage: UNK
     Route: 058
  142. SIMPONI [Interacting]
     Active Substance: GOLIMUMAB
     Dosage: 50 MG, MONTHLY
     Route: 058
  143. SIMPONI [Interacting]
     Active Substance: GOLIMUMAB
     Dosage: 50 MG, MONTHLY
     Route: 058
  144. SIMPONI [Interacting]
     Active Substance: GOLIMUMAB
     Dosage: UNK
     Route: 058
  145. SIMPONI [Interacting]
     Active Substance: GOLIMUMAB
     Dosage: UNK
     Route: 058
  146. XELJANZ [Interacting]
     Active Substance: TOFACITINIB CITRATE
     Indication: Rheumatoid arthritis
     Dosage: 5 MG, BID
     Route: 048
  147. XELJANZ [Interacting]
     Active Substance: TOFACITINIB CITRATE
     Dosage: 5 MG, WEEKLY
     Route: 048
  148. XELJANZ [Interacting]
     Active Substance: TOFACITINIB CITRATE
     Dosage: 5 MG
     Route: 065
  149. TOFACITINIB CITRATE [Interacting]
     Active Substance: TOFACITINIB CITRATE
     Indication: Rheumatoid arthritis
     Dosage: 5 MG, BID
     Route: 048
  150. TOFACITINIB CITRATE [Interacting]
     Active Substance: TOFACITINIB CITRATE
     Indication: Psoriatic arthropathy
     Dosage: UNK
     Route: 065
  151. TOFACITINIB CITRATE [Interacting]
     Active Substance: TOFACITINIB CITRATE
     Indication: Product used for unknown indication
  152. CETIRIZINE HYDROCHLORIDE\PSEUDOEPHEDRINE HYDROCHLORIDE [Interacting]
     Active Substance: CETIRIZINE HYDROCHLORIDE\PSEUDOEPHEDRINE HYDROCHLORIDE
     Indication: Rheumatoid arthritis
     Dosage: 25 MG, UNK
     Route: 065
  153. CETIRIZINE HYDROCHLORIDE\PSEUDOEPHEDRINE HYDROCHLORIDE [Interacting]
     Active Substance: CETIRIZINE HYDROCHLORIDE\PSEUDOEPHEDRINE HYDROCHLORIDE
     Indication: Off label use
     Dosage: 10 MG, UNK
     Route: 065
  154. CETIRIZINE HYDROCHLORIDE\PSEUDOEPHEDRINE HYDROCHLORIDE [Interacting]
     Active Substance: CETIRIZINE HYDROCHLORIDE\PSEUDOEPHEDRINE HYDROCHLORIDE
     Dosage: UNK
     Route: 065
  155. CETIRIZINE HYDROCHLORIDE\PSEUDOEPHEDRINE HYDROCHLORIDE [Interacting]
     Active Substance: CETIRIZINE HYDROCHLORIDE\PSEUDOEPHEDRINE HYDROCHLORIDE
     Dosage: 10 MG
     Route: 048
  156. CETIRIZINE HYDROCHLORIDE\PSEUDOEPHEDRINE HYDROCHLORIDE [Interacting]
     Active Substance: CETIRIZINE HYDROCHLORIDE\PSEUDOEPHEDRINE HYDROCHLORIDE
     Dosage: UNK
     Route: 065
  157. CETIRIZINE HYDROCHLORIDE\PSEUDOEPHEDRINE HYDROCHLORIDE [Interacting]
     Active Substance: CETIRIZINE HYDROCHLORIDE\PSEUDOEPHEDRINE HYDROCHLORIDE
     Dosage: UNK
     Route: 065
  158. CETIRIZINE HYDROCHLORIDE\PSEUDOEPHEDRINE HYDROCHLORIDE [Interacting]
     Active Substance: CETIRIZINE HYDROCHLORIDE\PSEUDOEPHEDRINE HYDROCHLORIDE
     Dosage: UNK
     Route: 065
  159. ENBREL [Interacting]
     Active Substance: ETANERCEPT
     Indication: Rheumatoid arthritis
     Dosage: UNK, UNK, UNK
     Route: 058
  160. ENBREL [Interacting]
     Active Substance: ETANERCEPT
     Dosage: 20 MG
     Route: 058
  161. ENBREL [Interacting]
     Active Substance: ETANERCEPT
     Dosage: 50 MG, WEEKLY
     Route: 058
  162. GOLIMUMAB [Interacting]
     Active Substance: GOLIMUMAB
     Indication: Rheumatoid arthritis
     Dosage: UNK
     Route: 065
  163. GOLIMUMAB [Interacting]
     Active Substance: GOLIMUMAB
     Dosage: UNK, CHANGED TO UNKNOWN
     Route: 065
  164. GOLIMUMAB [Interacting]
     Active Substance: GOLIMUMAB
     Dosage: UNK
     Route: 058
  165. ACETAMINOPHEN [Interacting]
     Active Substance: ACETAMINOPHEN
     Indication: Product used for unknown indication
     Dosage: UNK
     Route: 065
  166. CORTISONE ACETATE [Interacting]
     Active Substance: CORTISONE ACETATE
     Indication: Rheumatoid arthritis
     Dosage: 25 MG
     Route: 048
  167. CORTISONE ACETATE [Interacting]
     Active Substance: CORTISONE ACETATE
     Dosage: 25 MG
     Route: 048
  168. CORTISONE ACETATE [Interacting]
     Active Substance: CORTISONE ACETATE
     Dosage: UNK
     Route: 048
  169. TOPICORT [Interacting]
     Active Substance: DESOXIMETASONE
     Indication: Rheumatoid arthritis
     Dosage: UNK
     Route: 061
  170. TOPICORT [Interacting]
     Active Substance: DESOXIMETASONE
     Dosage: UNK
     Route: 058
  171. TOPICORT [Interacting]
     Active Substance: DESOXIMETASONE
     Dosage: UNK
     Route: 058
  172. TOPICORT [Interacting]
     Active Substance: DESOXIMETASONE
     Dosage: UNK
     Route: 048
  173. TOPICORT [Interacting]
     Active Substance: DESOXIMETASONE
     Dosage: UNK
     Route: 065
  174. KEVZARA [Interacting]
     Active Substance: SARILUMAB
     Dosage: UNK
     Route: 065
  175. CETIRIZINE HYDROCHLORIDE [Interacting]
     Active Substance: CETIRIZINE HYDROCHLORIDE
     Indication: Rheumatoid arthritis
     Dosage: UNK
  176. CETIRIZINE HYDROCHLORIDE [Interacting]
     Active Substance: CETIRIZINE HYDROCHLORIDE
     Dosage: 25 MG
     Route: 065
  177. DICLOFENAC DIETHYLAMINE [Interacting]
     Active Substance: DICLOFENAC DIETHYLAMINE
     Indication: Product used for unknown indication
     Dosage: UNK
     Route: 065
  178. MYCOPHENOLATE MOFETIL [Interacting]
     Active Substance: MYCOPHENOLATE MOFETIL
     Indication: Product used for unknown indication
     Dosage: UNK
     Route: 065
  179. CELECOXIB [Interacting]
     Active Substance: CELECOXIB
     Indication: Product used for unknown indication
     Dosage: 2 DOSAGE FORM, QD
     Route: 048
  180. CELECOXIB [Interacting]
     Active Substance: CELECOXIB
     Dosage: UNK
     Route: 065
  181. NAPROXEN SODIUM [Interacting]
     Active Substance: NAPROXEN SODIUM
     Indication: Rheumatoid arthritis
     Dosage: 500 MG, BID
     Route: 065
  182. DOXYCYCLINE [Interacting]
     Active Substance: DOXYCYCLINE
     Indication: Product used for unknown indication
     Dosage: 40 MG
     Route: 065
  183. PREGABALIN [Interacting]
     Active Substance: PREGABALIN
     Indication: Product used for unknown indication
     Dosage: UNK
     Route: 065
  184. APREMILAST [Interacting]
     Active Substance: APREMILAST
     Indication: Product used for unknown indication
     Dosage: 3 MG, BID
     Route: 065
  185. COSENTYX [Interacting]
     Active Substance: SECUKINUMAB
     Indication: Psoriatic arthropathy
     Dosage: UNK
     Route: 065
  186. COSENTYX [Interacting]
     Active Substance: SECUKINUMAB
     Dosage: UNK
     Route: 065
  187. USTEKINUMAB [Interacting]
     Active Substance: USTEKINUMAB
     Indication: Product used for unknown indication
     Dosage: 45 MG
     Route: 058
  188. USTEKINUMAB [Interacting]
     Active Substance: USTEKINUMAB
     Dosage: 45 MG
     Route: 042
  189. ERELZI [Interacting]
     Active Substance: ETANERCEPT-SZZS
     Indication: Rheumatoid arthritis
     Dosage: 50 MG, WEEKLY
     Route: 058
  190. ERELZI [Interacting]
     Active Substance: ETANERCEPT-SZZS
     Dosage: UNK
     Route: 065
  191. ERELZI [Interacting]
     Active Substance: ETANERCEPT-SZZS
     Dosage: UNK
     Route: 058
  192. FLUMETHASONE PIVALATE [Interacting]
     Active Substance: FLUMETHASONE PIVALATE
     Indication: Rheumatoid arthritis
     Dosage: UNK
     Route: 058
  193. TOCILIZUMAB [Interacting]
     Active Substance: TOCILIZUMAB
     Indication: Rheumatoid arthritis
     Dosage: UNK
     Route: 058
  194. TOCILIZUMAB [Interacting]
     Active Substance: TOCILIZUMAB
     Dosage: 5 MG, QD
     Route: 065
  195. GOLIMUMAB [Interacting]
     Active Substance: GOLIMUMAB
     Indication: Rheumatoid arthritis
     Dosage: UNK
     Route: 065
  196. GOLIMUMAB [Interacting]
     Active Substance: GOLIMUMAB
     Dosage: UNK
     Route: 058
  197. TOFACITINIB CITRATE [Interacting]
     Active Substance: TOFACITINIB CITRATE
     Indication: Rheumatoid arthritis
     Dosage: 5 MG, BID
     Route: 048
  198. TOFACITINIB CITRATE [Interacting]
     Active Substance: TOFACITINIB CITRATE
     Indication: Psoriatic arthropathy
     Dosage: UNK
     Route: 065
  199. INFLIXIMAB [Interacting]
     Active Substance: INFLIXIMAB
     Indication: Rheumatoid arthritis
     Dosage: UNK
     Route: 042
  200. INFLIXIMAB [Interacting]
     Active Substance: INFLIXIMAB
     Dosage: 400 MG
     Route: 065
  201. INFLIXIMAB [Interacting]
     Active Substance: INFLIXIMAB
     Dosage: UNK
     Route: 042
  202. INFLIXIMAB [Interacting]
     Active Substance: INFLIXIMAB
     Dosage: 400 MG
     Route: 065
  203. INFLIXIMAB [Interacting]
     Active Substance: INFLIXIMAB
     Dosage: UNK
     Route: 042
  204. OTEZLA [Interacting]
     Active Substance: APREMILAST
     Indication: Product used for unknown indication
     Dosage: 3 MG, BID
     Route: 048
  205. RITUXIMAB [Interacting]
     Active Substance: RITUXIMAB
     Indication: Rheumatoid arthritis
     Dosage: UNK
     Route: 058
  206. RITUXIMAB [Interacting]
     Active Substance: RITUXIMAB
     Dosage: UNK
     Route: 042
  207. RITUXIMAB [Interacting]
     Active Substance: RITUXIMAB
     Dosage: UNK
     Route: 042
  208. STELARA [Interacting]
     Active Substance: USTEKINUMAB
     Indication: Product used for unknown indication
     Dosage: UNK
     Route: 058
  209. STELARA [Interacting]
     Active Substance: USTEKINUMAB
     Dosage: 45 MG
     Route: 042
  210. ALENDRONATE SODIUM [Interacting]
     Active Substance: ALENDRONATE SODIUM
     Indication: Rheumatoid arthritis
     Dosage: UNK
     Route: 048
  211. ALENDRONATE SODIUM [Interacting]
     Active Substance: ALENDRONATE SODIUM
     Dosage: UNK
     Route: 048
  212. ALENDRONATE SODIUM [Interacting]
     Active Substance: ALENDRONATE SODIUM
     Dosage: UNK
     Route: 048
  213. TOFACITINIB [Interacting]
     Active Substance: TOFACITINIB
     Indication: Rheumatoid arthritis
     Dosage: 5 MG, WEEKLY
     Route: 048
  214. CELEBREX [Interacting]
     Active Substance: CELECOXIB
     Indication: Product used for unknown indication
     Dosage: 2 DOSAGE FORM, QD
     Route: 048
  215. CELEBREX [Interacting]
     Active Substance: CELECOXIB
     Dosage: UNK
     Route: 065
  216. PREDNISONE [Interacting]
     Active Substance: PREDNISONE
     Indication: Rheumatoid arthritis
     Dosage: UNK
     Route: 048
  217. ENBREL [Interacting]
     Active Substance: ETANERCEPT
     Indication: Rheumatoid arthritis
     Dosage: 20 MG
     Route: 058
  218. ENBREL [Interacting]
     Active Substance: ETANERCEPT
     Dosage: 50 MG, WEEKLY
     Route: 058
  219. ENBREL [Interacting]
     Active Substance: ETANERCEPT
     Dosage: UNK
     Route: 058
  220. ACETAMINOPHEN\PROPOXYPHENE HYDROCHLORIDE [Interacting]
     Active Substance: ACETAMINOPHEN\PROPOXYPHENE HYDROCHLORIDE
     Dosage: UNK
     Route: 065
  221. TOPICORT [Interacting]
     Active Substance: DESOXIMETASONE
     Indication: Rheumatoid arthritis
     Dosage: UNK
     Route: 048
  222. TOPICORT [Interacting]
     Active Substance: DESOXIMETASONE
     Dosage: UNK
     Route: 058
  223. TOCILIZUMAB [Interacting]
     Active Substance: TOCILIZUMAB
     Dosage: UNK
     Route: 065
  224. ADALIMUMAB [Interacting]
     Active Substance: ADALIMUMAB
     Dosage: UNK
     Route: 065
  225. HYDROCORTISONE [Interacting]
     Active Substance: HYDROCORTISONE
     Indication: Rheumatoid arthritis
     Dosage: UNK
     Route: 065
  226. ERELZI [Interacting]
     Active Substance: ETANERCEPT-SZZS
     Dosage: UNK
     Route: 065
  227. TOFACITINIB [Interacting]
     Active Substance: TOFACITINIB
     Dosage: UNK
     Route: 065
  228. PIROXICAM [Concomitant]
     Active Substance: PIROXICAM
     Dosage: UNK
     Route: 065
  229. PREDNISOLONE ACETATE [Concomitant]
     Active Substance: PREDNISOLONE ACETATE
     Dosage: UNK
     Route: 065
  230. CALCIUM GLUCONATE [Concomitant]
     Active Substance: CALCIUM GLUCONATE
     Dosage: UNK
     Route: 065
  231. RAMIPRIL [Concomitant]
     Active Substance: RAMIPRIL
     Dosage: UNK
     Route: 065
  232. RISEDRONATE SODIUM [Concomitant]
     Active Substance: RISEDRONATE SODIUM
     Dosage: UNK
     Route: 065
  233. SULFASALAZINE [Concomitant]
     Active Substance: SULFASALAZINE
     Dosage: UNK
     Route: 065
  234. VITAMIN D3 [Concomitant]
     Active Substance: CHOLECALCIFEROL
     Dosage: UNK
     Route: 065
  235. QUETIAPINE [Concomitant]
     Active Substance: QUETIAPINE
     Dosage: UNK
     Route: 065
  236. IBUPROFEN [Concomitant]
     Active Substance: IBUPROFEN
     Dosage: UNK
     Route: 065
  237. LEVOTHYROXINE SODIUM [Concomitant]
     Active Substance: LEVOTHYROXINE SODIUM
     Dosage: UNK
     Route: 065
  238. LISINOPRIL [Concomitant]
     Active Substance: LISINOPRIL
     Dosage: UNK
     Route: 065
  239. MAGNESIUM [Concomitant]
     Active Substance: MAGNESIUM
     Dosage: UNK
     Route: 065
  240. MELOXICAM [Concomitant]
     Active Substance: MELOXICAM
     Dosage: UNK
     Route: 065
  241. PANTOPRAZOLE [Concomitant]
     Active Substance: PANTOPRAZOLE
     Dosage: UNK
     Route: 065
  242. ACETAMINOPHEN\PROPOXYPHENE HYDROCHLORIDE [Concomitant]
     Active Substance: ACETAMINOPHEN\PROPOXYPHENE HYDROCHLORIDE
     Dosage: UNK
  243. ACETAMINOPHEN\PROPOXYPHENE HYDROCHLORIDE [Concomitant]
     Active Substance: ACETAMINOPHEN\PROPOXYPHENE HYDROCHLORIDE
     Dosage: UNK
  244. ACETAMINOPHEN\CAFFEINE\CODEINE PHOSPHATE [Concomitant]
     Active Substance: ACETAMINOPHEN\CAFFEINE\CODEINE PHOSPHATE
     Dosage: UNK
  245. CAFFEINE [Concomitant]
     Active Substance: CAFFEINE
     Dosage: UNK
  246. CAFFEINE CITRATE [Concomitant]
     Active Substance: CAFFEINE CITRATE
     Dosage: UNK
  247. ACETAMINOPHEN\CODEINE PHOSPHATE [Concomitant]
     Active Substance: ACETAMINOPHEN\CODEINE PHOSPHATE
     Dosage: UNK
  248. DICLOFENAC POTASSIUM [Concomitant]
     Active Substance: DICLOFENAC POTASSIUM
     Dosage: UNK
  249. LEFLUNOMIDE [Concomitant]
     Active Substance: LEFLUNOMIDE
     Dosage: UNK
  250. LISINOPRIL [Concomitant]
     Active Substance: LISINOPRIL
     Dosage: UNK
  251. PRINIVIL [Concomitant]
     Active Substance: LISINOPRIL
     Dosage: UNK
  252. CALCIUM GLUCONATE [Concomitant]
     Active Substance: CALCIUM GLUCONATE
     Dosage: UNK
  253. CHOLECALCIFEROL [Concomitant]
     Active Substance: CHOLECALCIFEROL
     Dosage: UNK
  254. ATASOL [Concomitant]
  255. DEXAMETHASONE [Concomitant]
     Active Substance: DEXAMETHASONE

REACTIONS (64)
  - Systemic lupus erythematosus [Not Recovered/Not Resolved]
  - Hand deformity [Not Recovered/Not Resolved]
  - Wheezing [Not Recovered/Not Resolved]
  - Sciatica [Not Recovered/Not Resolved]
  - Glossodynia [Not Recovered/Not Resolved]
  - Abdominal discomfort [Not Recovered/Not Resolved]
  - Abdominal discomfort [Not Recovered/Not Resolved]
  - Pain [Not Recovered/Not Resolved]
  - Pericarditis [Not Recovered/Not Resolved]
  - Rheumatoid arthritis [Not Recovered/Not Resolved]
  - Pemphigus [Not Recovered/Not Resolved]
  - Duodenal ulcer perforation [Not Recovered/Not Resolved]
  - Helicobacter infection [Not Recovered/Not Resolved]
  - Swelling [Not Recovered/Not Resolved]
  - Condition aggravated [Not Recovered/Not Resolved]
  - Anti-cyclic citrullinated peptide antibody positive [Not Recovered/Not Resolved]
  - Joint swelling [Not Recovered/Not Resolved]
  - Wound [Not Recovered/Not Resolved]
  - Rheumatoid factor positive [Not Recovered/Not Resolved]
  - Synovitis [Not Recovered/Not Resolved]
  - Hypersensitivity [Not Recovered/Not Resolved]
  - Discomfort [Not Recovered/Not Resolved]
  - Arthropathy [Not Recovered/Not Resolved]
  - Hip arthroplasty [Not Recovered/Not Resolved]
  - Arthralgia [Not Recovered/Not Resolved]
  - Knee arthroplasty [Not Recovered/Not Resolved]
  - Musculoskeletal stiffness [Not Recovered/Not Resolved]
  - Live birth [Unknown]
  - Blood cholesterol increased [Not Recovered/Not Resolved]
  - Fibromyalgia [Not Recovered/Not Resolved]
  - General physical health deterioration [Not Recovered/Not Resolved]
  - Hypoaesthesia [Not Recovered/Not Resolved]
  - Malaise [Not Recovered/Not Resolved]
  - Mobility decreased [Not Recovered/Not Resolved]
  - Rheumatic fever [Not Recovered/Not Resolved]
  - Oedema [Not Recovered/Not Resolved]
  - Psoriatic arthropathy [Not Recovered/Not Resolved]
  - Swollen joint count increased [Not Recovered/Not Resolved]
  - Type 2 diabetes mellitus [Not Recovered/Not Resolved]
  - Injury [Not Recovered/Not Resolved]
  - Sinusitis [Not Recovered/Not Resolved]
  - Blister [Not Recovered/Not Resolved]
  - Hypertension [Not Recovered/Not Resolved]
  - Infusion related reaction [Not Recovered/Not Resolved]
  - Fatigue [Not Recovered/Not Resolved]
  - Liver injury [Not Recovered/Not Resolved]
  - Hepatic enzyme increased [Not Recovered/Not Resolved]
  - Decreased appetite [Not Recovered/Not Resolved]
  - Rash [Not Recovered/Not Resolved]
  - Diarrhoea [Not Recovered/Not Resolved]
  - Vomiting [Not Recovered/Not Resolved]
  - Alopecia [Not Recovered/Not Resolved]
  - Abdominal pain upper [Not Recovered/Not Resolved]
  - Headache [Not Recovered/Not Resolved]
  - Product use issue [Unknown]
  - Contraindicated product administered [Unknown]
  - Prescribed overdose [Unknown]
  - Off label use [Unknown]
  - Maternal exposure during pregnancy [Unknown]
  - Intentional product use issue [Unknown]
  - Therapeutic product effect decreased [Unknown]
  - Treatment failure [Unknown]
  - Drug intolerance [Unknown]
  - Drug ineffective [Unknown]

NARRATIVE: CASE EVENT DATE: 19910101
